FAERS Safety Report 25477251 (Version 1)
Quarter: 2025Q2

REPORT INFORMATION
  Report Type: Spontaneous
  Country: IT (occurrence: IT)
  Receive Date: 20250625
  Receipt Date: 20250625
  Transmission Date: 20250717
  Serious: Yes (Other)
  Sender: RANBAXY
  Company Number: IT-MINISAL02-1028698

PATIENT
  Age: 17 Year
  Sex: Female

DRUGS (1)
  1. SERTRALINE [Suspect]
     Active Substance: SERTRALINE HYDROCHLORIDE
     Indication: Product used for unknown indication
     Route: 048
     Dates: start: 20250228, end: 20250228

REACTIONS (5)
  - Aphasia [Unknown]
  - Tremor [Unknown]
  - Language disorder [Unknown]
  - Tremor [Unknown]
  - Drug abuse [Unknown]

NARRATIVE: CASE EVENT DATE: 20250228
